FAERS Safety Report 7230383-9 (Version None)
Quarter: 2011Q1

REPORT INFORMATION
  Report Type: 
  Country: None (occurrence: None)
  Receive Date: 20110118
  Receipt Date: 20110103
  Transmission Date: 20110831
  Serious: Yes (Hospitalization, Other)
  Sender: FDA-Public Use
  Company Number: NL-TYCO HEALTHCARE/MALLINCKRODT-T201100003

PATIENT
  Sex: Male

DRUGS (5)
  1. MORPHINE [Suspect]
     Dosage: CONNECTED TO MORPHINE PUMP AFTER SURGERY
     Route: 042
     Dates: start: 20091101, end: 20091101
  2. CODEINE [Suspect]
     Indication: COUGH
     Dosage: 10 MG, TAKEN THREE TIMES
     Dates: start: 20091101, end: 20091101
  3. MORPHINE [Suspect]
     Indication: PAIN
     Dosage: UNK
     Dates: start: 20091101, end: 20091101
  4. MORPHINE [Suspect]
     Dosage: SECOND INJECTION 10 MINUTES AFTER THE FIRST
     Dates: start: 20091101, end: 20091101
  5. DICLOFENAC SODIUM [Suspect]
     Indication: PAIN
     Dosage: UNK
     Dates: start: 20091101, end: 20091101

REACTIONS (6)
  - ABDOMINAL PAIN [None]
  - NAUSEA [None]
  - LOSS OF CONSCIOUSNESS [None]
  - GALLBLADDER PERFORATION [None]
  - GLOMERULONEPHRITIS [None]
  - VOMITING [None]
